FAERS Safety Report 18163415 (Version 1)
Quarter: 2020Q3

REPORT INFORMATION
  Report Type: Report from Study
  Country: IT (occurrence: IT)
  Receive Date: 20200818
  Receipt Date: 20200818
  Transmission Date: 20201103
  Serious: Yes (Other)
  Sender: FDA-Public Use
  Company Number: IT-INCYTE CORPORATION-2020IN007877

PATIENT

DRUGS (14)
  1. JAKAVI [Suspect]
     Active Substance: RUXOLITINIB
     Dosage: 10 MG DAILY
     Route: 065
     Dates: start: 20190205, end: 20190324
  2. JAKAVI [Suspect]
     Active Substance: RUXOLITINIB
     Dosage: 5 MG DAILY
     Route: 065
     Dates: start: 20191125
  3. JAKAVI [Suspect]
     Active Substance: RUXOLITINIB
     Dosage: 15 MG DAILY
     Route: 065
     Dates: start: 20190325, end: 20190411
  4. JAKAVI [Suspect]
     Active Substance: RUXOLITINIB
     Dosage: 20 MG DAILY
     Route: 065
     Dates: start: 20190412, end: 20190522
  5. JAKAVI [Suspect]
     Active Substance: RUXOLITINIB
     Dosage: 20 MG DAILY
     Route: 065
     Dates: start: 20181127, end: 20190120
  6. JAKAVI [Suspect]
     Active Substance: RUXOLITINIB
     Dosage: 30 MG DAILY
     Route: 065
     Dates: start: 20190523, end: 20190616
  7. JAKAVI [Suspect]
     Active Substance: RUXOLITINIB
     Dosage: 15 MG DAILY
     Route: 065
     Dates: start: 20180608, end: 20180622
  8. JAKAVI [Suspect]
     Active Substance: RUXOLITINIB
     Dosage: 30 MG DAILY
     Route: 065
     Dates: start: 20180623, end: 20181011
  9. JAKAVI [Suspect]
     Active Substance: RUXOLITINIB
     Indication: MYELOFIBROSIS
     Dosage: 30 MG DAILY
     Route: 065
     Dates: start: 20180412, end: 20180607
  10. JAKAVI [Suspect]
     Active Substance: RUXOLITINIB
     Dosage: 15 MG DAILY
     Route: 065
     Dates: start: 20190807, end: 20190929
  11. JAKAVI [Suspect]
     Active Substance: RUXOLITINIB
     Dosage: 10 MG DAILY
     Route: 065
     Dates: start: 20190617, end: 20190806
  12. JAKAVI [Suspect]
     Active Substance: RUXOLITINIB
     Dosage: 15 MG DAILY
     Route: 065
     Dates: start: 20181012, end: 20181126
  13. JAKAVI [Suspect]
     Active Substance: RUXOLITINIB
     Dosage: 25 MG DAILY
     Route: 065
     Dates: start: 20190121, end: 20190204
  14. JAKAVI [Suspect]
     Active Substance: RUXOLITINIB
     Dosage: 10 MG DAILY
     Route: 065
     Dates: start: 20190930, end: 20191124

REACTIONS (4)
  - Arthralgia [Unknown]
  - Syncope [Unknown]
  - Fatigue [Unknown]
  - Pyrexia [Unknown]

NARRATIVE: CASE EVENT DATE: 20190204
